APPROVED DRUG PRODUCT: ETHACRYNIC ACID
Active Ingredient: ETHACRYNIC ACID
Strength: 25MG
Dosage Form/Route: TABLET;ORAL
Application: A205709 | Product #001
Applicant: ALVOGEN INC
Approved: Jul 24, 2018 | RLD: No | RS: No | Type: DISCN